FAERS Safety Report 10063448 (Version 1)
Quarter: 2014Q2

REPORT INFORMATION
  Report Type: Spontaneous
  Country: US (occurrence: US)
  Receive Date: 20140407
  Receipt Date: 20140407
  Transmission Date: 20141212
  Serious: Yes (Other)
  Sender: FDA-Public Use
  Company Number: US-TEVA-472872USA

PATIENT
  Sex: Female

DRUGS (1)
  1. PLAN B ONE-STEP [Suspect]
     Indication: POST COITAL CONTRACEPTION
     Route: 048
     Dates: start: 201402, end: 201402

REACTIONS (5)
  - Pregnancy after post coital contraception [Unknown]
  - Drug ineffective [Unknown]
  - Menorrhagia [Unknown]
  - Menorrhagia [Unknown]
  - Menstruation irregular [Unknown]
